FAERS Safety Report 7415958-6 (Version None)
Quarter: 2011Q2

REPORT INFORMATION
  Report Type: 
  Country: None (occurrence: None)
  Receive Date: 20110414
  Receipt Date: 20110404
  Transmission Date: 20111010
  Serious: Yes (Congenital Anomaly, Other)
  Sender: FDA-Public Use
  Company Number: PHHY2011US28191

PATIENT
  Sex: Female

DRUGS (4)
  1. AMPHETAMINE [Suspect]
     Dosage: UNK UKN, UNK
  2. PROPRANOLOL [Suspect]
     Dosage: 20 MG, TID
  3. METHIMAZOLE [Suspect]
     Dosage: UNK UKN, UNK
  4. METHIMAZOLE [Suspect]
     Indication: BASEDOW'S DISEASE
     Dosage: 40 MG DAILY
     Route: 064

REACTIONS (10)
  - SMALL FOR DATES BABY [None]
  - NASAL SEPTUM DISORDER [None]
  - ANKYLOGLOSSIA CONGENITAL [None]
  - DYSMORPHISM [None]
  - CONGENITAL NAIL DISORDER [None]
  - LABIA ENLARGED [None]
  - CLINODACTYLY [None]
  - HYPOTONIA [None]
  - DRUG EXPOSURE DURING PREGNANCY [None]
  - SYNDACTYLY [None]
